FAERS Safety Report 24378982 (Version 1)
Quarter: 2024Q3

REPORT INFORMATION
  Report Type: Spontaneous
  Country: CN (occurrence: CN)
  Receive Date: 20240930
  Receipt Date: 20240930
  Transmission Date: 20241016
  Serious: Yes (Other)
  Sender: JIANGSU HANSOH PHARMACEUTICAL
  Company Number: CN-Jiangsu Hansoh Pharmaceutical Co., Ltd-2162208

PATIENT
  Age: 53 Year
  Sex: Female
  Weight: 61 kg

DRUGS (4)
  1. GEMCITABINE HYDROCHLORIDE [Suspect]
     Active Substance: GEMCITABINE HYDROCHLORIDE
     Indication: Natural killer-cell lymphoblastic lymphoma
     Dates: start: 20240916, end: 20240916
  2. SINTILIMAB [Suspect]
     Active Substance: SINTILIMAB
     Dates: start: 20240915, end: 20240915
  3. PEGASPARGASE [Concomitant]
     Active Substance: PEGASPARGASE
     Dates: start: 20240916, end: 20240916
  4. OXALIPLATIN [Suspect]
     Active Substance: OXALIPLATIN
     Dates: start: 20240916, end: 20240916

REACTIONS (2)
  - Hypertension [Recovering/Resolving]
  - Off label use [Unknown]

NARRATIVE: CASE EVENT DATE: 20240916
